FAERS Safety Report 16958102 (Version 3)
Quarter: 2022Q1

REPORT INFORMATION
  Report Type: Spontaneous
  Country: IT (occurrence: IT)
  Receive Date: 20191024
  Receipt Date: 20220329
  Transmission Date: 20220423
  Serious: Yes (Death)
  Sender: FDA-Public Use
  Company Number: IT-PFIZER INC-2019457523

PATIENT
  Sex: Female

DRUGS (12)
  1. LEVETIRACETAM [Suspect]
     Active Substance: LEVETIRACETAM
     Indication: Status epilepticus
     Dosage: UNK (UP TO 50 MG/KG/DAY)
  2. MIDAZOLAM [Suspect]
     Active Substance: MIDAZOLAM
     Indication: Status epilepticus
     Dosage: UNK (UP TO 20 MCG/KG/MIN)
  3. MIDAZOLAM [Suspect]
     Active Substance: MIDAZOLAM
     Dosage: 5 UG/KG, UNK (5 MCG/KG/MIN)
  4. PHENOBARBITAL [Suspect]
     Active Substance: PHENOBARBITAL
     Indication: Status epilepticus
     Dosage: UNK
  5. PHENYTOIN [Suspect]
     Active Substance: PHENYTOIN
     Indication: Status epilepticus
     Dosage: UNK
  6. PROPOFOL [Suspect]
     Active Substance: PROPOFOL
     Indication: Status epilepticus
     Dosage: 2 MG/KG, UNK
  7. KETAMINE [Suspect]
     Active Substance: KETAMINE
     Indication: Status epilepticus
     Dosage: 2 MG/KG, UNK (TWO BOLUSES)
     Route: 040
  8. KETAMINE [Suspect]
     Active Substance: KETAMINE
     Dosage: 10 UG/KG, UNK (CONTINUOUS INFUSION OF 10 MCG/KG/MIN)
     Route: 042
  9. KETAMINE [Suspect]
     Active Substance: KETAMINE
     Dosage: UNK (UP TO 24 MCG/KG/MIN)
  10. KETAMINE [Suspect]
     Active Substance: KETAMINE
     Dosage: 2 MG/KG, UNK (OCCASIONAL BOLUSES)
     Route: 040
  11. KETAMINE [Suspect]
     Active Substance: KETAMINE
     Dosage: 60 UG/KG, UNK (60MCG/KG/MIN)
  12. CARBAMAZEPINE [Suspect]
     Active Substance: CARBAMAZEPINE
     Indication: Status epilepticus
     Dosage: 35.5 MG/KG, DAILY

REACTIONS (1)
  - Drug ineffective [Fatal]
